FAERS Safety Report 10111190 (Version 2)
Quarter: 2014Q2

REPORT INFORMATION
  Report Type: Spontaneous
  Country: US (occurrence: US)
  Receive Date: 20140425
  Receipt Date: 20140529
  Transmission Date: 20141212
  Serious: Yes (Hospitalization)
  Sender: FDA-Public Use
  Company Number: US-JNJFOC-20140413832

PATIENT
  Sex: Male
  Weight: 74.84 kg

DRUGS (10)
  1. XARELTO [Suspect]
     Indication: CARDIAC DISORDER
     Route: 048
     Dates: start: 20131026, end: 20140110
  2. XARELTO [Suspect]
     Indication: ANTICOAGULANT THERAPY
     Route: 048
     Dates: start: 20131026, end: 20140110
  3. OMEPRAZOLE [Concomitant]
     Route: 065
     Dates: start: 201011
  4. FOLIC ACID [Concomitant]
     Route: 065
     Dates: start: 201011
  5. LOSARTAN AND HYDROCHLOROTHIAZIDE [Concomitant]
     Dosage: 100/25MG
     Route: 065
     Dates: start: 201011
  6. CILOSTAZOL [Concomitant]
     Route: 065
     Dates: start: 201011
  7. METOPROLOL [Concomitant]
     Route: 065
     Dates: start: 201011
  8. SIMVASTATIN [Concomitant]
     Route: 065
     Dates: start: 201011
  9. EXELON [Concomitant]
     Route: 065
     Dates: start: 201011
  10. NAMENDA [Concomitant]
     Route: 065

REACTIONS (3)
  - Cardiac pacemaker insertion [Unknown]
  - Haematochezia [Recovered/Resolved]
  - Heart rate decreased [Recovered/Resolved]
